FAERS Safety Report 18857464 (Version 2)
Quarter: 2021Q1

REPORT INFORMATION
  Report Type: Spontaneous
  Country: CA (occurrence: CA)
  Receive Date: 20210208
  Receipt Date: 20210308
  Transmission Date: 20210420
  Serious: Yes (Other)
  Sender: FDA-Public Use
  Company Number: CA-CELLTRION INC.-2021CA001508

PATIENT

DRUGS (5)
  1. INFLECTRA [Suspect]
     Active Substance: INFLIXIMAB-DYYB
     Indication: PSORIASIS
     Dosage: UNK
  2. LEFLUNOMIDE. [Concomitant]
     Active Substance: LEFLUNOMIDE
     Dosage: 20 MG
  3. INFLECTRA [Suspect]
     Active Substance: INFLIXIMAB-DYYB
     Indication: PSORIATIC ARTHROPATHY
     Dosage: 340 MG AT Q 0, 2, 6 WEEK THEN EVERY 4 WEEKS
     Route: 042
     Dates: start: 20210225
  4. ACETAMINOPHEN. [Concomitant]
     Active Substance: ACETAMINOPHEN
     Indication: PREMEDICATION
     Dosage: UNK (DOSE NOT SPECIFIED)
     Dates: start: 20210225, end: 20210225
  5. DIMENHYDRINATE. [Concomitant]
     Active Substance: DIMENHYDRINATE
     Indication: PREMEDICATION
     Dosage: 50 MG
     Dates: start: 20210225, end: 20210225

REACTIONS (13)
  - Psoriatic arthropathy [Unknown]
  - Ear discomfort [Unknown]
  - Condition aggravated [Unknown]
  - Swelling face [Recovering/Resolving]
  - Heart rate irregular [Unknown]
  - Off label use [Unknown]
  - Red blood cell count increased [Unknown]
  - Off label use [Unknown]
  - Body temperature fluctuation [Unknown]
  - Haemoglobin decreased [Unknown]
  - Blood triglycerides increased [Unknown]
  - Blood cholesterol increased [Unknown]
  - Mean cell haemoglobin decreased [Unknown]

NARRATIVE: CASE EVENT DATE: 20210225
